FAERS Safety Report 8539382-8 (Version None)
Quarter: 2012Q3

REPORT INFORMATION
  Report Type: 
  Country: None (occurrence: None)
  Receive Date: 20120726
  Receipt Date: 20120716
  Transmission Date: 20120928
  Serious: Yes (Death, Other)
  Sender: FDA-Public Use
  Company Number: US-SANOFI-AVENTIS-2012SA037842

PATIENT
  Age: 73 Year
  Sex: Female
  Weight: 47.7 kg

DRUGS (19)
  1. EVISTA [Concomitant]
  2. ARAVA [Suspect]
     Route: 048
     Dates: start: 20120401, end: 20120417
  3. NASAL SALINE [Concomitant]
  4. VITAMIN B-12 [Concomitant]
  5. ARAVA [Suspect]
     Route: 048
     Dates: start: 20120425, end: 20120526
  6. FLUTICASONE PROPIONATE [Concomitant]
  7. PREDNISONE [Concomitant]
  8. ARAVA [Suspect]
     Route: 048
     Dates: start: 20120401, end: 20120417
  9. BUDESONIDE/FORMOTEROL [Concomitant]
  10. ALL OTHER THERAPEUTIC PRODUCTS [Concomitant]
  11. ARAVA [Suspect]
     Indication: RHEUMATOID ARTHRITIS
     Route: 048
     Dates: start: 20120322, end: 20120401
  12. ARAVA [Suspect]
     Indication: PULMONARY FIBROSIS
     Route: 048
     Dates: start: 20120322, end: 20120401
  13. MOBIC [Concomitant]
  14. PLAQUENIL [Concomitant]
  15. VITAMIN D [Concomitant]
  16. ARAVA [Suspect]
     Route: 048
     Dates: start: 20120425, end: 20120526
  17. HYDROCHLOROTHIAZIDE/LOSARTAN POTASSIUM [Concomitant]
  18. ALL OTHER THERAPEUTIC PRODUCTS [Concomitant]
  19. ALL OTHER THERAPEUTIC PRODUCTS [Concomitant]

REACTIONS (6)
  - DEATH [None]
  - ASTHENIA [None]
  - PULMONARY OEDEMA [None]
  - WEIGHT DECREASED [None]
  - DIARRHOEA [None]
  - ABDOMINAL PAIN [None]
